FAERS Safety Report 8336266-5 (Version None)
Quarter: 2012Q2

REPORT INFORMATION
  Report Type: 
  Country: None (occurrence: None)
  Receive Date: 20120501
  Receipt Date: 20120419
  Transmission Date: 20120825
  Serious: Yes (Other)
  Sender: FDA-Public Use
  Company Number: MC201200268

PATIENT
  Sex: Female

DRUGS (1)
  1. ANGIOMAX [Suspect]
     Indication: PERCUTANEOUS CORONARY INTERVENTION
     Dosage: UNK
     Dates: start: 20120401

REACTIONS (3)
  - CORONARY ARTERY DISSECTION [None]
  - PROCEDURAL COMPLICATION [None]
  - THROMBOSIS IN DEVICE [None]
